FAERS Safety Report 22290038 (Version 1)
Quarter: 2023Q2

REPORT INFORMATION
  Report Type: Spontaneous
  Country: CN (occurrence: None)
  Receive Date: 20230505
  Receipt Date: 20230505
  Transmission Date: 20230721
  Serious: Yes (Other)
  Sender: FDA-Public Use
  Company Number: 2023A103235

PATIENT
  Age: 34083 Day
  Sex: Male
  Weight: 56 kg

DRUGS (2)
  1. ESOMEPRAZOLE MAGNESIUM [Suspect]
     Active Substance: ESOMEPRAZOLE MAGNESIUM
     Indication: Gastric ulcer
     Route: 048
     Dates: start: 20230402, end: 20230409
  2. DYPHYLLINE [Suspect]
     Active Substance: DYPHYLLINE
     Indication: Asthma
     Route: 041
     Dates: start: 20230324, end: 20230408

REACTIONS (2)
  - Skin swelling [Recovering/Resolving]
  - Eczema [Unknown]

NARRATIVE: CASE EVENT DATE: 20230406
